FAERS Safety Report 4745604-1 (Version None)
Quarter: 2005Q3

REPORT INFORMATION
  Report Type: 
  Country: None (occurrence: None)
  Receive Date: 20050815
  Receipt Date: 20050622
  Transmission Date: 20060218
  Serious: Yes (Death, Other)
  Sender: FDA-Public Use
  Company Number: 05-05-0769

PATIENT
  Age: 77 Year
  Sex: Male

DRUGS (20)
  1. ALBUTEROL SULFATE UNKNOWN [Suspect]
     Dosage: 200MCG INHALATION
     Route: 055
  2. BECLOMETHASONE DIPROPIONATE [Suspect]
     Dosage: 200MCG
     Route: 055
  3. SPIRIVA [Suspect]
     Dosage: 18MCG INHALATION
     Route: 055
  4. ASPIRIN [Suspect]
     Dosage: 75MG
  5. ATORVASTATIN [Suspect]
     Dosage: 10MG
  6. COMBIVENT [Suspect]
     Dosage: QDS INHALATION
     Route: 055
  7. FRUMIL [Suspect]
  8. DEXAMETHASONE [Suspect]
     Dosage: 2MG
  9. DILTIAZEM [Suspect]
     Dosage: 120MG
  10. DOSULEPIN [Suspect]
     Dosage: 75MG, 1NOCTE
  11. FUROSEMIDE [Suspect]
     Dosage: 80MG
  12. GAVISCON [Suspect]
     Dosage: 40ML, QDS
  13. LACTULOSE [Suspect]
     Dosage: 3.35G/5ML
  14. LANSOPRAZOLE [Suspect]
     Dosage: 30MG, OD
  15. METOCLOPRAMIDE [Suspect]
     Dosage: 400MG
  16. NITROLINGUAL [Suspect]
     Dosage: 400MG
  17. NOZINAN [Suspect]
     Dosage: 100MG
  18. OXYCODONE [Suspect]
     Dosage: 40MG
  19. OXYGEN [Suspect]
     Dosage: INHALATION
     Route: 055
  20. SPIRONOLACTONE [Suspect]
     Dosage: 50MG

REACTIONS (3)
  - LUNG NEOPLASM MALIGNANT [None]
  - MESOTHELIOMA [None]
  - PLEURAL MESOTHELIOMA [None]
